FAERS Safety Report 17909085 (Version 1)
Quarter: 2020Q2

REPORT INFORMATION
  Report Type: Spontaneous
  Country: US (occurrence: US)
  Receive Date: 20200617
  Receipt Date: 20200617
  Transmission Date: 20200714
  Serious: Yes (Hospitalization)
  Sender: FDA-Public Use
  Company Number: US-MYLANLABS-2020M1057041

PATIENT
  Age: 16 Year
  Sex: Female

DRUGS (12)
  1. PRAZOSIN. [Suspect]
     Active Substance: PRAZOSIN
     Indication: PROPHYLAXIS
     Dosage: 1 MILLIGRAM, Q8H, THREE TIMES DAILY (EVERY 8 H)
     Route: 065
  2. PRAZOSIN. [Suspect]
     Active Substance: PRAZOSIN
     Indication: VASOCONSTRICTION
  3. NITROPRUSSIDE [Concomitant]
     Active Substance: NITROPRUSSIDE
     Indication: BLOOD PRESSURE INCREASED
  4. NICARDIPINE [Concomitant]
     Active Substance: NICARDIPINE
     Indication: BLOOD PRESSURE INCREASED
     Dosage: BOLUS
  5. FENTANYL. [Concomitant]
     Active Substance: FENTANYL
     Indication: INDUCTION AND MAINTENANCE OF ANAESTHESIA
     Dosage: 150 MICROGRAM
     Route: 065
  6. SEVOFLURANE. [Concomitant]
     Active Substance: SEVOFLURANE
     Indication: MAINTENANCE OF ANAESTHESIA
     Route: 065
  7. ATENOLOL. [Concomitant]
     Active Substance: ATENOLOL
     Indication: PROPHYLAXIS
     Dosage: 25 MILLIGRAM, 0.5 DAY
     Route: 065
  8. MIDAZOLAM. [Concomitant]
     Active Substance: MIDAZOLAM
     Indication: INDUCTION OF ANAESTHESIA
     Dosage: 5 MILLIGRAM
     Route: 065
  9. ROCURONIUM [Concomitant]
     Active Substance: ROCURONIUM BROMIDE
     Indication: INDUCTION AND MAINTENANCE OF ANAESTHESIA
     Dosage: 40 MILLIGRAM
     Route: 065
  10. PROPOFOL. [Concomitant]
     Active Substance: PROPOFOL
     Indication: BLOOD PRESSURE INCREASED
     Dosage: 500 MILLIGRAM, BOLUS
  11. LIDOCAINE. [Concomitant]
     Active Substance: LIDOCAINE
     Indication: INDUCTION OF ANAESTHESIA
     Dosage: 100 MILLIGRAM
     Route: 065
  12. MILRINONE [Concomitant]
     Active Substance: MILRINONE
     Indication: BLOOD PRESSURE INCREASED

REACTIONS (2)
  - Off label use [Unknown]
  - Haemodynamic instability [Unknown]
